FAERS Safety Report 9667690 (Version 1)
Quarter: 2013Q4

REPORT INFORMATION
  Report Type: Spontaneous
  Country: US (occurrence: US)
  Receive Date: 20131101
  Receipt Date: 20131101
  Transmission Date: 20140711
  Serious: Yes (Other)
  Sender: FDA-Public Use
  Company Number: US-ORACLE-2012S1000039

PATIENT
  Age: 34 Year
  Sex: Male
  Weight: 91.17 kg

DRUGS (7)
  1. KRYSTEXXA INJECTION [Suspect]
     Indication: GOUT
     Route: 042
     Dates: start: 20120328, end: 20120328
  2. KRYSTEXXA INJECTION [Suspect]
     Indication: GOUT
     Route: 042
     Dates: start: 20120411, end: 20120411
  3. KRYSTEXXA INJECTION [Suspect]
     Indication: GOUT
     Route: 042
     Dates: start: 20120425, end: 20120425
  4. BENADRYL /00945501/ [Concomitant]
     Indication: PREMEDICATION
     Route: 048
     Dates: start: 20120328, end: 20120425
  5. ALLOPURINOL [Concomitant]
     Indication: GOUT
     Dates: start: 2011
  6. NAPROXEN [Concomitant]
     Indication: PRODUCT USED FOR UNKNOWN INDICATION
     Route: 048
     Dates: start: 2011
  7. PREDNISONE [Concomitant]
     Indication: PRODUCT USED FOR UNKNOWN INDICATION
     Dates: start: 2012

REACTIONS (2)
  - Anaphylactic reaction [Recovered/Resolved]
  - Therapeutic response decreased [Unknown]
